FAERS Safety Report 8846483 (Version 3)
Quarter: 2012Q4

REPORT INFORMATION
  Report Type: 
  Country: US (occurrence: US)
  Receive Date: 20121017
  Receipt Date: 20121019
  Transmission Date: 20130627
  Serious: Yes (Disabling)
  Sender: FDA-Public Use
  Company Number: US-ROCHE-1145616

PATIENT
  Sex: Male
  Weight: 86.26 kg

DRUGS (3)
  1. CELLCEPT [Suspect]
     Indication: WEGENER^S GRANULOMATOSIS
     Route: 048
     Dates: start: 2010
  2. NIFEDIPINE [Concomitant]
     Indication: HYPERTENSION
     Route: 048
     Dates: start: 2010
  3. PREDNISOLONE [Concomitant]
     Indication: WEGENER^S GRANULOMATOSIS
     Route: 048
     Dates: start: 2010

REACTIONS (1)
  - Corneal disorder [Not Recovered/Not Resolved]
